FAERS Safety Report 5063540-0 (Version None)
Quarter: 2006Q3

REPORT INFORMATION
  Report Type: 
  Country: None (occurrence: None)
  Receive Date: 20060724
  Receipt Date: 20060706
  Transmission Date: 20061208
  Serious: Yes (Life-Threatening)
  Sender: FDA-Public Use
  Company Number: 227467

PATIENT
  Age: 57 Year
  Sex: Female

DRUGS (4)
  1. AVASTIN [Suspect]
     Indication: RECTAL CANCER
     Dosage: 330 MG, Q2W, INTRAVENOUS
     Route: 042
     Dates: start: 20051205
  2. IRINOTECAN HCL [Suspect]
     Indication: RECTAL CANCER
     Dosage: 300 MG, Q2W, INTRAVENOUS
     Route: 042
     Dates: start: 20051205
  3. FLUOROURACIL [Suspect]
     Indication: RECTAL CANCER
     Dosage: 4 G, QD
     Dates: start: 20051205
  4. LEUCOVORIN CALCIUM [Suspect]
     Indication: RECTAL CANCER
     Dosage: 50 MG, QD

REACTIONS (3)
  - PERITONITIS [None]
  - SEPSIS [None]
  - SMALL INTESTINAL PERFORATION [None]
